FAERS Safety Report 16842200 (Version 8)
Quarter: 2020Q3

REPORT INFORMATION
  Report Type: Report from Study
  Country: None (occurrence: NL)
  Receive Date: 20190923
  Receipt Date: 20200915
  Transmission Date: 20201102
  Serious: Yes (Hospitalization, Other)
  Sender: FDA-Public Use
  Company Number: NL-ABBVIE-19K-114-2929806-00

PATIENT
  Age: 62 Year
  Sex: Male

DRUGS (15)
  1. DUODOPA [Suspect]
     Active Substance: CARBIDOPA\LEVODOPA
     Dosage: MD 11.0 ; CD 4.3; ED 1.0?REMAINED AT 16 HOURS
     Route: 050
     Dates: start: 20190703
  2. DUODOPA [Suspect]
     Active Substance: CARBIDOPA\LEVODOPA
     Dosage: MD 6.0, CD 4.3, ED 1.0?REMAINS AT 16 HOURS
     Route: 050
  3. DUODOPA [Suspect]
     Active Substance: CARBIDOPA\LEVODOPA
     Dosage: MD 7 CD 4 ED 1
     Route: 050
  4. VENTOLIN [Concomitant]
     Active Substance: ALBUTEROL SULFATE
     Indication: PRODUCT USED FOR UNKNOWN INDICATION
  5. DUODOPA [Suspect]
     Active Substance: CARBIDOPA\LEVODOPA
     Dosage: CD 4.0, ED 1.0, MD 12.0
     Route: 050
  6. DUODOPA [Suspect]
     Active Substance: CARBIDOPA\LEVODOPA
     Dosage: MD: 7.0 CD: 4.5 ED: 1.5?REMAINED AT 16 HOURS
     Route: 050
  7. SYMBICORT [Concomitant]
     Active Substance: BUDESONIDE\FORMOTEROL FUMARATE DIHYDRATE
     Indication: PRODUCT USED FOR UNKNOWN INDICATION
  8. FOSTER [Concomitant]
     Active Substance: BECLOMETHASONE\FORMOTEROL
     Indication: PRODUCT USED FOR UNKNOWN INDICATION
  9. FENYLBUTAZON [Concomitant]
     Indication: PRODUCT USED FOR UNKNOWN INDICATION
  10. MOVICOLON [Concomitant]
     Active Substance: POLYETHYLENE GLYCOL 3350\POTASSIUM CHLORIDE\SODIUM BICARBONATE\SODIUM CHLORIDE
     Indication: ABNORMAL FAECES
  11. DUODOPA [Suspect]
     Active Substance: CARBIDOPA\LEVODOPA
     Indication: PARKINSON^S DISEASE
     Dosage: CONTINUOUS DOSE : 4.7
     Route: 050
  12. DUODOPA [Suspect]
     Active Substance: CARBIDOPA\LEVODOPA
     Dosage: CONTINUOUS DOSE IS DECREASED FROM 4.7 TO 4.5
     Route: 050
  13. DUODOPA [Suspect]
     Active Substance: CARBIDOPA\LEVODOPA
     Dosage: CD: 4.3
     Route: 050
  14. DIOVAN [Concomitant]
     Active Substance: VALSARTAN
     Indication: PRODUCT USED FOR UNKNOWN INDICATION
  15. DUODOPA [Suspect]
     Active Substance: CARBIDOPA\LEVODOPA
     Dosage: MD: 7.0 CD: 4.0 ED: 1.0?REMAINED AT 16 HOURS
     Route: 050

REACTIONS (34)
  - Knee operation [Recovered/Resolved]
  - Malaise [Not Recovered/Not Resolved]
  - Tooth extraction [Not Recovered/Not Resolved]
  - Muscle rigidity [Not Recovered/Not Resolved]
  - Post procedural complication [Not Recovered/Not Resolved]
  - Immunodeficiency [Unknown]
  - Cognitive disorder [Unknown]
  - Retinitis [Not Recovered/Not Resolved]
  - Medical device site vesicles [Recovered/Resolved]
  - Disturbance in attention [Unknown]
  - Insomnia [Recovered/Resolved]
  - On and off phenomenon [Not Recovered/Not Resolved]
  - Toothache [Recovered/Resolved]
  - Visual impairment [Unknown]
  - Memory impairment [Not Recovered/Not Resolved]
  - Nausea [Not Recovered/Not Resolved]
  - Tooth extraction [Recovered/Resolved]
  - Joint injury [Recovering/Resolving]
  - Mobility decreased [Not Recovered/Not Resolved]
  - Device breakage [Unknown]
  - Obsessive-compulsive disorder [Unknown]
  - Peritonitis [Unknown]
  - Mobility decreased [Not Recovered/Not Resolved]
  - Limb discomfort [Not Recovered/Not Resolved]
  - Hypersomnia [Not Recovered/Not Resolved]
  - Head titubation [Recovering/Resolving]
  - Fall [Recovered/Resolved]
  - Hallucination [Not Recovered/Not Resolved]
  - Dyskinesia [Recovered/Resolved]
  - Ligament rupture [Recovered/Resolved]
  - Neck pain [Not Recovered/Not Resolved]
  - Decreased appetite [Recovered/Resolved]
  - Therapeutic product effect incomplete [Unknown]
  - Unevaluable event [Unknown]

NARRATIVE: CASE EVENT DATE: 201907
